FAERS Safety Report 9123017 (Version 1)
Quarter: 2013Q1

REPORT INFORMATION
  Report Type: Spontaneous
  Country: US (occurrence: US)
  Receive Date: 20130115
  Receipt Date: 20130115
  Transmission Date: 20140127
  Serious: Yes (Life-Threatening)
  Sender: FDA-Public Use
  Company Number: US-009507513-1301USA003355

PATIENT
  Age: 69 Year
  Sex: Female

DRUGS (15)
  1. SINGULAIR [Suspect]
     Indication: ASTHMA
     Dosage: 10 MG, UNK
     Route: 048
  2. PREDNISONE [Suspect]
     Dosage: 20 MG, UNK
     Route: 048
  3. DESLORATADINE [Suspect]
  4. ACETAMINOPHEN [Suspect]
  5. UTEPLEX [Suspect]
  6. CACIT VITAMINE D3 [Suspect]
  7. DEDROGYL [Suspect]
  8. FENOFIBRATE [Suspect]
  9. PANTOPRAZOLE SODIUM [Suspect]
     Dosage: 40 MG, UNK
  10. ALDACTONE [Suspect]
     Dosage: 25 MG, UNK
  11. PROTELOS [Suspect]
     Indication: OSTEOPOROSIS
     Route: 048
  12. SYMBICORT [Suspect]
     Dosage: 400/12 ?G
     Route: 055
  13. BRICANYL [Suspect]
     Dosage: 30 MG, UNK
     Route: 055
  14. XOLAIR [Suspect]
     Dosage: 20 MG, UNK
     Route: 058
  15. ATROVENT [Suspect]
     Dosage: 1.5 MG, UNK
     Route: 055

REACTIONS (2)
  - Lung neoplasm malignant [Unknown]
  - Lung neoplasm [Unknown]
